FAERS Safety Report 5717684-8 (Version None)
Quarter: 2008Q2

REPORT INFORMATION
  Report Type: 
  Country: None (occurrence: None)
  Receive Date: 20080425
  Receipt Date: 20080417
  Transmission Date: 20081010
  Serious: Yes (Hospitalization)
  Sender: FDA-Public Use
  Company Number: DE-BAYER-200816906GPV

PATIENT
  Age: 59 Year
  Sex: Male

DRUGS (7)
  1. ASPIRIN [Suspect]
     Indication: CEREBROVASCULAR ACCIDENT PROPHYLAXIS
     Route: 048
     Dates: start: 20031219
  2. AGGRENOX [Suspect]
     Indication: CEREBROVASCULAR ACCIDENT PROPHYLAXIS
     Route: 048
     Dates: start: 20031219
  3. MICARDIS [Suspect]
     Indication: CEREBROVASCULAR ACCIDENT PROPHYLAXIS
     Route: 048
     Dates: start: 20031219
  4. CLOPIDOGREL [Suspect]
     Indication: CEREBROVASCULAR ACCIDENT PROPHYLAXIS
     Route: 048
     Dates: start: 20031219
  5. METOPROLOL TARTRATE [Suspect]
     Indication: HYPERTENSION
     Route: 048
     Dates: start: 20000314, end: 20031220
  6. METOPROLOL TARTRATE [Suspect]
     Route: 048
     Dates: start: 20031221, end: 20031221
  7. BENDROFLUMETHIAZID [Suspect]
     Indication: HYPERTENSION
     Route: 048
     Dates: start: 20031218, end: 20031221

REACTIONS (1)
  - SYNCOPE [None]
